FAERS Safety Report 20999070 (Version 1)
Quarter: 2022Q2

REPORT INFORMATION
  Report Type: Spontaneous
  Country: IR (occurrence: IR)
  Receive Date: 20220623
  Receipt Date: 20220623
  Transmission Date: 20220721
  Serious: Yes (Hospitalization, Other)
  Sender: FDA-Public Use
  Company Number: IR-SCIEGENP-2022SCLIT00450

PATIENT
  Age: 36 Year
  Sex: Female

DRUGS (9)
  1. METFORMIN HYDROCHLORIDE [Suspect]
     Active Substance: METFORMIN HYDROCHLORIDE
     Indication: Weight decreased
     Dosage: 20-30 PILLS DAILY
     Route: 065
  2. CYCLOPHOSPHAMIDE [Concomitant]
     Active Substance: CYCLOPHOSPHAMIDE
     Indication: Autoimmune myocarditis
     Route: 065
  3. CYCLOPHOSPHAMIDE [Concomitant]
     Active Substance: CYCLOPHOSPHAMIDE
     Route: 065
  4. PREDNISOLONE [Concomitant]
     Active Substance: PREDNISOLONE
     Indication: Autoimmune myocarditis
     Route: 065
  5. PREDNISOLONE [Concomitant]
     Active Substance: PREDNISOLONE
     Route: 065
  6. NOREPINEPHRINE [Concomitant]
     Active Substance: NOREPINEPHRINE
     Indication: Product used for unknown indication
     Route: 065
  7. DOPAMINE [Concomitant]
     Active Substance: DOPAMINE HYDROCHLORIDE
     Indication: Product used for unknown indication
     Route: 065
  8. PRIVIGEN [Concomitant]
     Active Substance: HUMAN IMMUNOGLOBULIN G
     Indication: Vasculitis
     Route: 042
  9. METHYLPREDNISOLONE [Concomitant]
     Active Substance: METHYLPREDNISOLONE
     Indication: Vasculitis
     Route: 065

REACTIONS (9)
  - Acute kidney injury [Recovering/Resolving]
  - Neuropathy peripheral [Recovering/Resolving]
  - Pancytopenia [Recovering/Resolving]
  - Cardiogenic shock [Recovering/Resolving]
  - Toxicity to various agents [Unknown]
  - Hyponatraemia [Recovering/Resolving]
  - Anaemia megaloblastic [Recovering/Resolving]
  - Drug abuse [Unknown]
  - Off label use [Unknown]
